FAERS Safety Report 14385315 (Version 1)
Quarter: 2018Q1

REPORT INFORMATION
  Report Type: Spontaneous
  Country: US (occurrence: US)
  Receive Date: 20180115
  Receipt Date: 20180115
  Transmission Date: 20180509
  Serious: Yes (Other)
  Sender: FDA-Public Use
  Company Number: US-SA-2016SA228312

PATIENT
  Age: 42 Year
  Sex: Female
  Weight: 133.81 kg

DRUGS (7)
  1. TAXOTERE [Suspect]
     Active Substance: DOCETAXEL
     Indication: BREAST CANCER FEMALE
     Dosage: DOSE: 140 MG-175 MG
     Route: 051
     Dates: start: 20121227, end: 20121227
  2. TYLENOL [Concomitant]
     Active Substance: ACETAMINOPHEN
  3. NEULASTA [Concomitant]
     Active Substance: PEGFILGRASTIM
  4. HYDROCODONE BITARTRATE AND ACETAMINOPHEN [Concomitant]
     Active Substance: ACETAMINOPHEN\HYDROCODONE BITARTRATE
  5. VITAMIN D [Concomitant]
     Active Substance: CHOLECALCIFEROL
  6. TAXOTERE [Suspect]
     Active Substance: DOCETAXEL
     Indication: BREAST CANCER FEMALE
     Dosage: DOSE: 140 MG-175 MG
     Route: 051
     Dates: start: 20130417, end: 20130417
  7. LEVAQUIN [Concomitant]
     Active Substance: LEVOFLOXACIN

REACTIONS (8)
  - Impaired quality of life [Unknown]
  - Hair texture abnormal [Unknown]
  - Psychological trauma [Unknown]
  - Anxiety [Unknown]
  - Alopecia [Not Recovered/Not Resolved]
  - Pain [Unknown]
  - Hair colour changes [Unknown]
  - Emotional distress [Unknown]

NARRATIVE: CASE EVENT DATE: 20170117
